FAERS Safety Report 6669900-6 (Version None)
Quarter: 2010Q2

REPORT INFORMATION
  Report Type: 
  Country: None (occurrence: None)
  Receive Date: 20100406
  Receipt Date: 20100104
  Transmission Date: 20101027
  Serious: No
  Sender: FDA-Public Use
  Company Number: US-ALLERGAN-1000037US

PATIENT
  Age: 49 Year
  Sex: Female

DRUGS (2)
  1. LATISSE [Suspect]
     Indication: GROWTH OF EYELASHES
     Dosage: 1 GTT, QHS
     Route: 061
     Dates: start: 20091101, end: 20091227
  2. TOPROL-XL [Concomitant]
     Indication: HYPERTENSION

REACTIONS (4)
  - ERYTHEMA [None]
  - EYE SWELLING [None]
  - EYELID OEDEMA [None]
  - SKIN IRRITATION [None]
